APPROVED DRUG PRODUCT: INDOMETHACIN
Active Ingredient: INDOMETHACIN
Strength: 50MG
Dosage Form/Route: SUPPOSITORY;RECTAL
Application: A073314 | Product #001 | TE Code: AB
Applicant: COSETTE PHARMACEUTICALS INC
Approved: Aug 31, 1992 | RLD: No | RS: Yes | Type: RX